FAERS Safety Report 25434448 (Version 2)
Quarter: 2025Q2

REPORT INFORMATION
  Report Type: Spontaneous
  Country: FR (occurrence: FR)
  Receive Date: 20250613
  Receipt Date: 20250625
  Transmission Date: 20250717
  Serious: Yes (Other)
  Sender: TEVA
  Company Number: FR-TEVA-VS-3341095

PATIENT
  Age: 77 Year
  Sex: Male

DRUGS (11)
  1. CISPLATIN [Suspect]
     Active Substance: CISPLATIN
     Indication: Nasal sinus cancer
     Route: 065
  2. METHOTREXATE [Suspect]
     Active Substance: METHOTREXATE
     Indication: Nasal sinus cancer
     Route: 065
  3. GEMCITABINE [Suspect]
     Active Substance: GEMCITABINE
     Indication: Nasal sinus cancer
     Route: 065
  4. NIVOLUMAB [Suspect]
     Active Substance: NIVOLUMAB
     Indication: Nasal sinus cancer
     Route: 065
     Dates: start: 202102, end: 202203
  5. CARBOPLATIN [Suspect]
     Active Substance: CARBOPLATIN
     Indication: Nasal sinus cancer
     Route: 065
     Dates: start: 202004, end: 202301
  6. DOCETAXEL [Suspect]
     Active Substance: DOCETAXEL
     Indication: Nasal sinus cancer
     Route: 065
     Dates: end: 202007
  7. PACLITAXEL [Suspect]
     Active Substance: PACLITAXEL
     Indication: Nasal sinus cancer
     Route: 065
     Dates: end: 202301
  8. FLUOROURACIL [Concomitant]
     Active Substance: FLUOROURACIL
     Indication: Nasal sinus cancer
     Route: 065
  9. ERDAFITINIB [Suspect]
     Active Substance: ERDAFITINIB
     Indication: Nasal sinus cancer
     Route: 065
     Dates: start: 202303, end: 202306
  10. ERDAFITINIB [Suspect]
     Active Substance: ERDAFITINIB
     Indication: Nasal sinus cancer
     Route: 065
     Dates: start: 202301, end: 202303
  11. CETUXIMAB [Suspect]
     Active Substance: CETUXIMAB
     Indication: Nasal sinus cancer
     Route: 065
     Dates: start: 202004, end: 202301

REACTIONS (4)
  - Drug ineffective [Unknown]
  - Fatigue [Recovering/Resolving]
  - Mucosal inflammation [Recovering/Resolving]
  - Skin toxicity [Recovering/Resolving]

NARRATIVE: CASE EVENT DATE: 20230201
